FAERS Safety Report 21613016 (Version 2)
Quarter: 2022Q4

REPORT INFORMATION
  Report Type: Spontaneous
  Country: BR (occurrence: None)
  Receive Date: 20221118
  Receipt Date: 20221221
  Transmission Date: 20230113
  Serious: Yes (Hospitalization)
  Sender: FDA-Public Use
  Company Number: BR-ROCHE-3218033

PATIENT
  Sex: Male
  Weight: 6 kg

DRUGS (3)
  1. TAMIFLU [Suspect]
     Active Substance: OSELTAMIVIR PHOSPHATE
     Indication: Influenza
     Route: 065
     Dates: start: 20220105, end: 20220109
  2. PREDNISOLONE [Concomitant]
     Active Substance: PREDNISOLONE
     Indication: Influenza
  3. ALBUTEROL [Concomitant]
     Active Substance: ALBUTEROL
     Indication: Influenza

REACTIONS (5)
  - Eyelid oedema [Unknown]
  - Hyperaemia [Recovered/Resolved]
  - Skin exfoliation [Recovered/Resolved]
  - Eye discharge [Unknown]
  - Dacryostenosis acquired [Unknown]

NARRATIVE: CASE EVENT DATE: 20220106
